FAERS Safety Report 13469421 (Version 1)
Quarter: 2017Q2

REPORT INFORMATION
  Report Type: Spontaneous
  Country: US (occurrence: US)
  Receive Date: 20170421
  Receipt Date: 20170421
  Transmission Date: 20170830
  Serious: Yes (Other)
  Sender: FDA-Public Use
  Company Number: US-ALLERGAN-1715117US

PATIENT
  Age: 67 Year
  Sex: Female

DRUGS (4)
  1. SIMVASTATIN. [Concomitant]
     Active Substance: SIMVASTATIN
     Indication: HYPERTENSION
     Route: 065
  2. RECTIV [Suspect]
     Active Substance: NITROGLYCERIN
     Indication: ANAL FISSURE
     Dosage: UNK, SINGLE
     Route: 054
     Dates: start: 20170418, end: 20170418
  3. METOPROLOL. [Concomitant]
     Active Substance: METOPROLOL
     Indication: HYPERTENSION
     Route: 065
  4. LISINOPRIL. [Concomitant]
     Active Substance: LISINOPRIL
     Indication: BLOOD CHOLESTEROL INCREASED
     Route: 065

REACTIONS (3)
  - Proctalgia [Recovering/Resolving]
  - Pain [Recovering/Resolving]
  - Dyspnoea [Recovering/Resolving]

NARRATIVE: CASE EVENT DATE: 20170418
